FAERS Safety Report 9642154 (Version 3)
Quarter: 2014Q3

REPORT INFORMATION
  Report Type: Report from Study
  Country: DE (occurrence: DE)
  Receive Date: 20131023
  Receipt Date: 20140901
  Transmission Date: 20150326
  Serious: Yes (Hospitalization)
  Sender: FDA-Public Use
  Company Number: DE-ROCHE-1279652

PATIENT
  Age: 64 Year
  Sex: Male
  Weight: 72 kg

DRUGS (6)
  1. BEVACIZUMAB [Suspect]
     Active Substance: BEVACIZUMAB
     Indication: RECTAL CANCER METASTATIC
     Route: 042
     Dates: end: 20130723
  2. LISINOPRIL. [Concomitant]
     Active Substance: LISINOPRIL
     Indication: HYPERTENSION
     Route: 065
  3. OXYCODON [Concomitant]
     Active Substance: OXYCODONE
     Indication: PAIN
     Route: 048
  4. NOVAMINSULFON [Concomitant]
     Active Substance: METAMIZOLE
     Indication: METASTASES TO BONE
     Route: 048
  5. CAPECITABINE [Concomitant]
     Active Substance: CAPECITABINE
     Indication: RECTAL CANCER METASTATIC
     Route: 048
     Dates: start: 20130723
  6. IRINOTECAN [Concomitant]
     Active Substance: IRINOTECAN
     Indication: COLORECTAL CANCER
     Route: 042
     Dates: start: 20140311

REACTIONS (1)
  - Venous occlusion [Recovered/Resolved]

NARRATIVE: CASE EVENT DATE: 20130827
